FAERS Safety Report 15749969 (Version 2)
Quarter: 2020Q3

REPORT INFORMATION
  Report Type: Spontaneous
  Country: US (occurrence: US)
  Receive Date: 20181221
  Receipt Date: 20200730
  Transmission Date: 20201102
  Serious: No
  Sender: FDA-Public Use
  Company Number: US-VERTEX PHARMACEUTICALS-2018-005737

PATIENT
  Sex: Female

DRUGS (3)
  1. KALYDECO [Suspect]
     Active Substance: IVACAFTOR
     Indication: CYSTIC FIBROSIS
     Dosage: 150 MG, BID
     Route: 048
     Dates: start: 20180725
  2. CAYSTON [Concomitant]
     Active Substance: AZTREONAM
  3. KALYDECO [Suspect]
     Active Substance: IVACAFTOR
     Dosage: 150MG, BID
     Route: 048
     Dates: start: 201812

REACTIONS (1)
  - Exposure during pregnancy [Unknown]
